FAERS Safety Report 5514124-9 (Version None)
Quarter: 2007Q4

REPORT INFORMATION
  Report Type: 
  Country: None (occurrence: None)
  Receive Date: 20071113
  Receipt Date: 20071105
  Transmission Date: 20080405
  Serious: Yes (Hospitalization)
  Sender: FDA-Public Use
  Company Number: FR-BRISTOL-MYERS SQUIBB COMPANY-13978564

PATIENT
  Age: 54 Year
  Sex: Male

DRUGS (6)
  1. ERBITUX [Suspect]
     Route: 042
  2. OSMOTAN G [Suspect]
     Indication: PREMEDICATION
     Route: 042
  3. PRIMPERAN INJ [Suspect]
     Indication: PREMEDICATION
     Route: 042
  4. SOLU-MEDROL [Suspect]
     Indication: PREMEDICATION
     Route: 042
  5. RANIPLEX [Suspect]
     Indication: PREMEDICATION
     Route: 042
  6. POLARAMINE [Suspect]
     Indication: PREMEDICATION
     Route: 042

REACTIONS (4)
  - ANAPHYLACTIC SHOCK [None]
  - CONVULSION [None]
  - HYPOTENSION [None]
  - LOSS OF CONSCIOUSNESS [None]
